FAERS Safety Report 6376815-X (Version None)
Quarter: 2009Q3

REPORT INFORMATION
  Report Type: 
  Country: None (occurrence: None)
  Receive Date: 20090925
  Receipt Date: 20090922
  Transmission Date: 20100115
  Serious: Yes (Disabling, Other)
  Sender: FDA-Public Use
  Company Number: FR-BRISTOL-MYERS SQUIBB COMPANY-14689574

PATIENT
  Age: 53 Year
  Sex: Male
  Weight: 70 kg

DRUGS (7)
  1. SUSTIVA [Suspect]
     Indication: HIV INFECTION
     Dates: end: 20090624
  2. TRUVADA [Concomitant]
     Indication: HIV INFECTION
     Dosage: 1 DF= 1TAB
     Dates: start: 20090325
  3. PLAVIX [Concomitant]
     Dates: start: 20080301
  4. KARDEGIC [Concomitant]
     Dates: start: 20080101
  5. CARDENSIEL [Concomitant]
     Dates: start: 20080101
  6. COVERSYL [Concomitant]
     Dates: start: 20080101
  7. OMACOR [Concomitant]
     Indication: CARDIAC DISORDER
     Dates: start: 20080101

REACTIONS (1)
  - VESTIBULAR NEURONITIS [None]
